FAERS Safety Report 11517344 (Version 3)
Quarter: 2015Q4

REPORT INFORMATION
  Report Type: Report from Study
  Country: JP (occurrence: JP)
  Receive Date: 20150917
  Receipt Date: 20151130
  Transmission Date: 20160304
  Serious: Yes (Life-Threatening, Hospitalization, Disabling, Other)
  Sender: FDA-Public Use
  Company Number: JP-GLAXOSMITHKLINE-JP2015JPN131067

PATIENT
  Sex: Male

DRUGS (15)
  1. LAMOTRIGINE. [Suspect]
     Active Substance: LAMOTRIGINE
     Indication: SIMPLE PARTIAL SEIZURES
     Dosage: 25 MG, 1D
     Route: 048
     Dates: end: 20150122
  2. FOSPHENYTOIN [Suspect]
     Active Substance: FOSPHENYTOIN\FOSPHENYTOIN SODIUM
     Dosage: 300 MG, 1D
     Route: 065
     Dates: start: 20150503, end: 20150505
  3. CARBAMAZEPINE. [Concomitant]
     Active Substance: CARBAMAZEPINE
     Dosage: 200 MG, 1D
     Dates: start: 20150113, end: 20150129
  4. LAMOTRIGINE. [Suspect]
     Active Substance: LAMOTRIGINE
     Dosage: 100 MG, 1D
     Route: 048
     Dates: start: 20150214, end: 20150227
  5. CARBAMAZEPINE. [Concomitant]
     Active Substance: CARBAMAZEPINE
     Dosage: 500 MG, 1D
     Dates: start: 20141219, end: 20150112
  6. LAMOTRIGINE. [Suspect]
     Active Substance: LAMOTRIGINE
     Dosage: 75 MG, 1D
     Route: 048
     Dates: start: 20150131, end: 20150213
  7. LAMOTRIGINE. [Suspect]
     Active Substance: LAMOTRIGINE
     Dosage: 125 MG, 1D
     Route: 048
     Dates: start: 20150228, end: 20150313
  8. LAMOTRIGINE. [Suspect]
     Active Substance: LAMOTRIGINE
     Dosage: 200 MG, 1D
     Route: 048
     Dates: start: 20150418, end: 20150430
  9. KEPPRA [Concomitant]
     Active Substance: LEVETIRACETAM
     Dosage: 2000 MG, 1D
     Dates: start: 20150512
  10. LAMOTRIGINE. [Suspect]
     Active Substance: LAMOTRIGINE
     Dosage: 175 MG, 1D
     Route: 048
     Dates: start: 20150404, end: 20150417
  11. CARBAMAZEPINE. [Concomitant]
     Active Substance: CARBAMAZEPINE
     Dosage: 100 MG, 1D
     Dates: start: 20150130, end: 20150213
  12. LAMOTRIGINE. [Suspect]
     Active Substance: LAMOTRIGINE
     Indication: TONIC CONVULSION
     Dosage: 50 MG, 1D
     Route: 048
     Dates: start: 20150123, end: 20150130
  13. LAMOTRIGINE. [Suspect]
     Active Substance: LAMOTRIGINE
     Dosage: 150 MG, 1D
     Route: 048
     Dates: start: 20150314, end: 20150403
  14. LAMOTRIGINE. [Suspect]
     Active Substance: LAMOTRIGINE
     Dosage: 250 MG, 1D
     Route: 048
     Dates: start: 20150501, end: 20150502
  15. KEPPRA [Concomitant]
     Active Substance: LEVETIRACETAM
     Dosage: 1000 MG, 1D
     Dates: start: 20150503, end: 20150511

REACTIONS (4)
  - Rhabdomyolysis [Recovered/Resolved]
  - Bradyarrhythmia [Not Recovered/Not Resolved]
  - Status epilepticus [Recovered/Resolved with Sequelae]
  - Disseminated intravascular coagulation [Recovered/Resolved]

NARRATIVE: CASE EVENT DATE: 20150110
